FAERS Safety Report 5759898-7 (Version None)
Quarter: 2008Q2

REPORT INFORMATION
  Report Type: 
  Country: None (occurrence: None)
  Receive Date: 20080605
  Receipt Date: 20080526
  Transmission Date: 20081010
  Serious: Yes (Hospitalization)
  Sender: FDA-Public Use
  Company Number: DE-BRISTOL-MYERS SQUIBB COMPANY-14212427

PATIENT
  Age: 71 Year
  Sex: Female
  Weight: 52 kg

DRUGS (4)
  1. ERBITUX [Suspect]
     Indication: COLORECTAL CANCER METASTATIC
     Dosage: 23JUL07-644MG,WEEKLY DOSE:400MG,MOST RECENT DOSE ADMINISTERED:30JUL07,COMBINATION AT A DOSE:130MG/M2
     Route: 041
     Dates: start: 20070723, end: 20070730
  2. IRINOTECAN HCL [Suspect]
     Indication: COLORECTAL CANCER METASTATIC
     Dosage: THE MOST RECENT DOSE ADMINISTERED ON 30JUL2007,GIVEN IN COMBINATION AT A DOSE OF 130MG/M2
     Dates: start: 20070723, end: 20070730
  3. DEXAMETHASONE TAB [Concomitant]
     Dates: start: 20070723
  4. KEVATRIL [Concomitant]
     Dates: start: 20070723

REACTIONS (1)
  - GASTRIC HAEMORRHAGE [None]
